FAERS Safety Report 10340275 (Version 4)
Quarter: 2015Q1

REPORT INFORMATION
  Report Type: Spontaneous
  Country: US (occurrence: US)
  Receive Date: 20140724
  Receipt Date: 20150212
  Transmission Date: 20150720
  Serious: Yes (Hospitalization, Other)
  Sender: FDA-Public Use
  Company Number: US-GILEAD-2014-0109678

PATIENT
  Age: 64 Year
  Sex: Female

DRUGS (3)
  1. REVATIO [Concomitant]
     Active Substance: SILDENAFIL CITRATE
  2. LETAIRIS [Suspect]
     Active Substance: AMBRISENTAN
     Indication: SARCOIDOSIS
  3. LETAIRIS [Suspect]
     Active Substance: AMBRISENTAN
     Indication: PULMONARY ARTERIAL HYPERTENSION
     Dosage: 10 MG, QD
     Route: 065
     Dates: start: 20130313

REACTIONS (7)
  - Dyspnoea [Unknown]
  - Dialysis [Unknown]
  - Fall [Unknown]
  - Abasia [Unknown]
  - Pneumonia [Not Recovered/Not Resolved]
  - Oedema peripheral [Unknown]
  - Weight decreased [Unknown]

NARRATIVE: CASE EVENT DATE: 20140715
